FAERS Safety Report 20454492 (Version 2)
Quarter: 2022Q1

REPORT INFORMATION
  Report Type: Report from Study
  Country: ES (occurrence: ES)
  Receive Date: 20220210
  Receipt Date: 20220303
  Transmission Date: 20220424
  Serious: Yes (Hospitalization)
  Sender: FDA-Public Use
  Company Number: ES-SEATTLE GENETICS-2021SGN04600

PATIENT
  Age: 66 Year
  Sex: Female
  Weight: 58 kg

DRUGS (10)
  1. ENFORTUMAB VEDOTIN [Suspect]
     Active Substance: ENFORTUMAB VEDOTIN
     Indication: Transitional cell carcinoma
     Dosage: 1.25 MG/KG, CYCLIC (ON DAYS 1 AND 8 OF EVERY 3-WEEK CYCLE)
     Route: 042
     Dates: start: 20210825, end: 20210901
  2. PEMBROLIZUMAB [Suspect]
     Active Substance: PEMBROLIZUMAB
     Indication: Transitional cell carcinoma
     Dosage: 200 MG, CYCLIC (ON DAY 1 OF EACH 3-WEEK CYCLE)
     Route: 042
     Dates: start: 20210825, end: 20210901
  3. IVABRADINE HYDROCHLORIDE [Concomitant]
     Active Substance: IVABRADINE HYDROCHLORIDE
     Indication: Cardiac disorder
     Dosage: UNK UNK, TWICE DAILY (1-0-1)
     Route: 065
     Dates: start: 2009
  4. ASPIRIN [Concomitant]
     Active Substance: ASPIRIN
     Indication: Cardiac disorder
     Dosage: UNK UNK, ONCE DAILY
     Route: 065
     Dates: start: 2009
  5. VYTORIN [Concomitant]
     Active Substance: EZETIMIBE\SIMVASTATIN
     Indication: Blood cholesterol
     Dosage: UNK UNK, ONCE DAILY (0-0-1)
     Route: 065
     Dates: start: 2009
  6. VENLAFAXINE HYDROCHLORIDE [Concomitant]
     Active Substance: VENLAFAXINE HYDROCHLORIDE
     Indication: Depression
     Dosage: UNK UNK, ONCE DAILY (1-0-0)
     Route: 065
     Dates: start: 2004
  7. ACETAMINOPHEN [Concomitant]
     Active Substance: ACETAMINOPHEN
     Indication: Pain
     Dosage: UNK UNK, AS NEEDED
     Route: 065
     Dates: start: 2014
  8. Nolotil [Concomitant]
     Indication: Pain
     Dosage: UNK UNK, AS NEEDED (PRN)
     Route: 065
     Dates: start: 2014
  9. ARCOXIA [Concomitant]
     Active Substance: ETORICOXIB
     Indication: Bone pain
     Dosage: UNK UNK, ONCE DAILY (1-0-0)
     Route: 065
     Dates: start: 202107
  10. FENTANYL TRANSDERMAL SYSTEM [Concomitant]
     Active Substance: FENTANYL
     Indication: Prophylaxis
     Dosage: 25 MG/H
     Route: 065
     Dates: start: 20210819

REACTIONS (2)
  - Autoimmune hepatitis [Recovered/Resolved]
  - Sepsis [Recovered/Resolved]

NARRATIVE: CASE EVENT DATE: 20210831
